FAERS Safety Report 8829353 (Version 2)
Quarter: 2012Q4

REPORT INFORMATION
  Report Type: Report from Study
  Country: US (occurrence: US)
  Receive Date: 20121009
  Receipt Date: 20121009
  Transmission Date: 20130627
  Serious: Yes (Other)
  Sender: FDA-Public Use
  Company Number: US-ABBOTT-12P-163-0989677-00

PATIENT
  Age: 53 None
  Sex: Male

DRUGS (17)
  1. HUMIRA [Suspect]
     Indication: RHEUMATOID ARTHRITIS
     Dates: start: 20111027
  2. FLU SHOT [Concomitant]
     Indication: PRODUCT USED FOR UNKNOWN INDICATION
  3. DIOVAN HCT [Concomitant]
     Indication: HYPERTENSION
  4. AMLODIPINE DESILATE [Concomitant]
     Indication: HYPERTENSION
  5. GLIMEPRIDE [Concomitant]
     Indication: DIABETES MELLITUS
  6. HYDROXYCHLORAQUINE [Concomitant]
     Indication: RHEUMATOID ARTHRITIS
  7. AZURETTE [Concomitant]
     Indication: HORMONE REPLACEMENT THERAPY
  8. MELAOXICAM [Concomitant]
     Indication: ARTHRITIS
  9. POTASSIUM CHLORIDE [Concomitant]
     Indication: MINERAL SUPPLEMENTATION
  10. PENNSAID [Concomitant]
     Indication: ARTHRITIS
  11. RESTATSIS [Concomitant]
     Indication: DRY EYE
  12. FERROUS SULFATE [Concomitant]
     Indication: ANAEMIA
  13. VITAMIN D [Concomitant]
     Indication: PRODUCT USED FOR UNKNOWN INDICATION
  14. VITAMIN B [Concomitant]
     Indication: PRODUCT USED FOR UNKNOWN INDICATION
  15. GLUCOSAMINE [Concomitant]
     Indication: ARTHRITIS
  16. HYDROCODONE [Concomitant]
     Indication: ARTHRITIS
  17. VOLTARIN [Concomitant]
     Indication: PRODUCT USED FOR UNKNOWN INDICATION

REACTIONS (5)
  - Intervertebral disc protrusion [Recovered/Resolved]
  - Intervertebral disc protrusion [Not Recovered/Not Resolved]
  - Pain [Recovered/Resolved]
  - Fatigue [Recovered/Resolved]
  - Back pain [Recovered/Resolved]
